FAERS Safety Report 11789156 (Version 1)
Quarter: 2015Q4

REPORT INFORMATION
  Report Type: Spontaneous
  Country: US (occurrence: None)
  Receive Date: 20151130
  Receipt Date: 20151130
  Transmission Date: 20160305
  Serious: No
  Sender: FDA-Public Use
  Company Number: None

PATIENT
  Age: 67 Year
  Sex: Male
  Weight: 97.07 kg

DRUGS (2)
  1. CLINDAMYCIN 300MG [Suspect]
     Active Substance: CLINDAMYCIN PHOSPHATE
     Indication: TOOTH INFECTION
     Dosage: 1 CAP VERY 6HRS
     Route: 048
     Dates: start: 20151005, end: 20151128
  2. CLINDAMYCIN 300MG [Suspect]
     Active Substance: CLINDAMYCIN PHOSPHATE
     Indication: ENDODONTIC PROCEDURE
     Dosage: 1 CAP VERY 6HRS
     Route: 048
     Dates: start: 20151005, end: 20151128

REACTIONS (3)
  - Diarrhoea [None]
  - Rash [None]
  - Abdominal discomfort [None]

NARRATIVE: CASE EVENT DATE: 20151128
